FAERS Safety Report 6595739-6 (Version None)
Quarter: 2010Q1

REPORT INFORMATION
  Report Type: 
  Country: None (occurrence: None)
  Receive Date: 20100219
  Receipt Date: 20100219
  Transmission Date: 20100710
  Serious: No
  Sender: FDA-Public Use
  Company Number: None

PATIENT
  Age: 73 Year
  Sex: Female
  Weight: 65.318 kg

DRUGS (3)
  1. SIMVASTATIN [Suspect]
     Indication: BLOOD CHOLESTEROL
     Dosage: ONE TABLET EVERY DAY OFF FOR ONE WEEK
     Dates: start: 20091120
  2. SIMVASTATIN [Suspect]
     Indication: BLOOD CHOLESTEROL
     Dosage: ONE TABLET EVERY DAY
     Dates: start: 20091230
  3. SIMVASTATIN [Suspect]
     Indication: BLOOD CHOLESTEROL
     Dosage: ONE TABLET EVERY DAY
     Dates: start: 20100202

REACTIONS (3)
  - CHROMATURIA [None]
  - MUSCLE SPASMS [None]
  - MYALGIA [None]
